FAERS Safety Report 12767149 (Version 1)
Quarter: 2016Q3

REPORT INFORMATION
  Report Type: Spontaneous
  Country: NL (occurrence: NL)
  Receive Date: 20160921
  Receipt Date: 20160921
  Transmission Date: 20161109
  Serious: Yes (Other)
  Sender: FDA-Public Use
  Company Number: NL-ASTRAZENECA-2016SE99751

PATIENT
  Sex: Male

DRUGS (1)
  1. ZOLADEX [Suspect]
     Active Substance: GOSERELIN ACETATE
     Dosage: EVERY 3 MONTHS
     Route: 058

REACTIONS (3)
  - Fatigue [Unknown]
  - Metastases to lymph nodes [Unknown]
  - Bone pain [Unknown]
